FAERS Safety Report 23087717 (Version 1)
Quarter: 2023Q4

REPORT INFORMATION
  Report Type: Spontaneous
  Country: DK (occurrence: DK)
  Receive Date: 20231020
  Receipt Date: 20231020
  Transmission Date: 20240110
  Serious: Yes (Life-Threatening, Hospitalization)
  Sender: FDA-Public Use
  Company Number: None

PATIENT
  Age: 50 Year
  Sex: Male
  Weight: 66 kg

DRUGS (6)
  1. OZEMPIC [Suspect]
     Active Substance: SEMAGLUTIDE
     Indication: Type 2 diabetes mellitus
     Dosage: 0.25 MG, QW
     Route: 058
     Dates: start: 20211106, end: 20230413
  2. GLYTRIN [Concomitant]
     Indication: Angina pectoris
     Dosage: UNK
     Dates: start: 20150527
  3. HJERTEMAGNYL [Concomitant]
     Indication: Thrombosis prophylaxis
     Dosage: UNK
     Dates: start: 20150527
  4. ATORVASTATIN ^ACCORD^ [Concomitant]
     Indication: Hypercholesterolaemia
     Dosage: UNK
     Dates: start: 20200227
  5. METFORMIN ^AUROBINDO^ [Concomitant]
     Indication: Type 2 diabetes mellitus
     Dosage: 1000 MG, QD
     Dates: start: 20180316
  6. LOSARTAN POTASSIUM [Concomitant]
     Active Substance: LOSARTAN POTASSIUM
     Indication: Hypertension
     Dosage: UNK
     Dates: start: 20181218

REACTIONS (4)
  - Pancreatitis acute [Not Recovered/Not Resolved]
  - Malaise [Unknown]
  - Abdominal pain [Unknown]
  - Fatigue [Unknown]

NARRATIVE: CASE EVENT DATE: 20230401
